FAERS Safety Report 12440139 (Version 1)
Quarter: 2016Q2

REPORT INFORMATION
  Report Type: Spontaneous
  Country: US (occurrence: US)
  Receive Date: 20160606
  Receipt Date: 20160606
  Transmission Date: 20160815
  Serious: Yes (Other)
  Sender: FDA-Public Use
  Company Number: US-AMGEN-USASP2015099467

PATIENT
  Age: 78 Year
  Sex: Female

DRUGS (2)
  1. EPOGEN [Suspect]
     Active Substance: ERYTHROPOIETIN
     Indication: IRON DEFICIENCY ANAEMIA
     Dosage: UNK
     Route: 065
     Dates: start: 2007
  2. EPOGEN [Suspect]
     Active Substance: ERYTHROPOIETIN

REACTIONS (26)
  - Gait disturbance [Unknown]
  - Decreased appetite [Unknown]
  - Dizziness [Unknown]
  - Weight decreased [Unknown]
  - Renal disorder [Not Recovered/Not Resolved]
  - Off label use [Unknown]
  - Pain [Unknown]
  - Fall [Unknown]
  - Headache [Unknown]
  - Thrombosis [Unknown]
  - Drug administration error [Unknown]
  - Pancreatic disorder [Not Recovered/Not Resolved]
  - Malaise [Unknown]
  - Feeling abnormal [Unknown]
  - Liver disorder [Not Recovered/Not Resolved]
  - Anxiety [Unknown]
  - Nerve injury [Unknown]
  - Visual impairment [Unknown]
  - Chest pain [Unknown]
  - Hypertension [Unknown]
  - Limb discomfort [Unknown]
  - Paraesthesia [Unknown]
  - Cachexia [Unknown]
  - Vision blurred [Not Recovered/Not Resolved]
  - Cardiac disorder [Not Recovered/Not Resolved]
  - Renal cyst [Unknown]
